FAERS Safety Report 7197080-X (Version None)
Quarter: 2010Q4

REPORT INFORMATION
  Report Type: 
  Country: None (occurrence: None)
  Receive Date: 20101224
  Receipt Date: 20101217
  Transmission Date: 20110411
  Serious: Yes (Death, Hospitalization)
  Sender: FDA-Public Use
  Company Number: JP-BRISTOL-MYERS SQUIBB COMPANY-15439227

PATIENT
  Age: 50 Year
  Sex: Male

DRUGS (3)
  1. CISPLATIN [Suspect]
     Indication: BLADDER TRANSITIONAL CELL CARCINOMA
     Dosage: DAY 1
     Dates: start: 20080901
  2. GEMCITABINE [Suspect]
     Indication: BLADDER TRANSITIONAL CELL CARCINOMA
     Dosage: ON 1, 8 AND 15 DAYS
     Route: 042
     Dates: start: 20080901
  3. FENTANYL-100 [Suspect]
     Indication: BONE PAIN

REACTIONS (5)
  - DEEP VEIN THROMBOSIS [None]
  - HYPERCALCAEMIA [None]
  - PULMONARY EMBOLISM [None]
  - RESPIRATORY FAILURE [None]
  - REVERSIBLE POSTERIOR LEUKOENCEPHALOPATHY SYNDROME [None]
